FAERS Safety Report 11631282 (Version 1)
Quarter: 2015Q4

REPORT INFORMATION
  Report Type: Spontaneous
  Country: US (occurrence: US)
  Receive Date: 20151014
  Receipt Date: 20151014
  Transmission Date: 20160304
  Serious: No
  Sender: FDA-Public Use
  Company Number: US-ASTRAZENECA-2015SE97175

PATIENT
  Sex: Male
  Weight: 83 kg

DRUGS (6)
  1. FENOFIBRATE. [Concomitant]
     Active Substance: FENOFIBRATE
     Indication: BLOOD CHOLESTEROL ABNORMAL
     Route: 048
  2. BYETTA [Suspect]
     Active Substance: EXENATIDE
     Route: 065
  3. METFORMINE [Concomitant]
     Active Substance: METFORMIN HYDROCHLORIDE
     Indication: DIABETES MELLITUS
     Route: 048
  4. LISINOPRIL. [Suspect]
     Active Substance: LISINOPRIL
     Indication: BLOOD PRESSURE ABNORMAL
     Route: 048
  5. BABY ASPIRIN [Concomitant]
     Active Substance: ASPIRIN
     Route: 048
  6. BYDUREON [Suspect]
     Active Substance: EXENATIDE
     Dosage: 2 MG 4 COUNT
     Route: 065

REACTIONS (6)
  - Memory impairment [Unknown]
  - Product solubility abnormal [Unknown]
  - Injection site mass [Not Recovered/Not Resolved]
  - Injection site pain [Recovered/Resolved]
  - Pancreatitis [Recovered/Resolved]
  - Injection site haemorrhage [Unknown]
